FAERS Safety Report 15314793 (Version 1)
Quarter: 2018Q3

REPORT INFORMATION
  Report Type: Spontaneous
  Country: US (occurrence: US)
  Receive Date: 20180814
  Receipt Date: 20180814
  Transmission Date: 20181010
  Serious: Yes (Other)
  Sender: FDA-Public Use
  Company Number: None

PATIENT
  Sex: Female
  Weight: 59.87 kg

DRUGS (10)
  1. CIPROFLOXACIN. [Concomitant]
     Active Substance: CIPROFLOXACIN
  2. LISINOPRIL. [Concomitant]
     Active Substance: LISINOPRIL
  3. VITAMIN D3 [Concomitant]
     Active Substance: CHOLECALCIFEROL
  4. GABAPENTIN 300MG GENERIC [Suspect]
     Active Substance: GABAPENTIN
     Indication: RADIATION INJURY
     Dosage: TAKE  3? CAPSUOES  AT NIGHT BY MOUTH
     Route: 048
  5. LEVOTHYROXIN [Concomitant]
     Active Substance: LEVOTHYROXINE
  6. AMLODIPINE [Concomitant]
     Active Substance: AMLODIPINE BESYLATE
  7. CALARITIN [Concomitant]
  8. GABAPENTIN 300MG GENERIC [Suspect]
     Active Substance: GABAPENTIN
     Indication: NERVE INJURY
     Dosage: TAKE  3? CAPSUOES  AT NIGHT BY MOUTH
     Route: 048
  9. MELOTONIN [Concomitant]
  10. TRAMADOL. [Concomitant]
     Active Substance: TRAMADOL

REACTIONS (7)
  - Peripheral swelling [None]
  - Skin exfoliation [None]
  - Erythema [None]
  - Insomnia [None]
  - Balance disorder [None]
  - Burning sensation [None]
  - Feeling abnormal [None]
